FAERS Safety Report 5227356-4 (Version None)
Quarter: 2007Q1

REPORT INFORMATION
  Report Type: 
  Country: None (occurrence: None)
  Receive Date: 20070130
  Receipt Date: 20061102
  Transmission Date: 20070707
  Serious: Yes (Life-Threatening, Hospitalization)
  Sender: FDA-Public Use
  Company Number: 1-14584101

PATIENT
  Sex: Female

DRUGS (6)
  1. QUININE 300 MG (MFR. NI) [Suspect]
     Indication: MUSCLE SPASMS
     Dosage: 300 MG X 1 DOSE, ORAL
     Route: 048
  2. ATORVASTATIN 20 MG (MFR. NI) [Suspect]
     Indication: DYSLIPIDAEMIA
     Dosage: 20 MG, ONCE DAILY, ORAL
     Route: 048
  3. AMLODIPINE [Concomitant]
  4. ATENOLOL [Concomitant]
  5. ASPIRIN [Concomitant]
  6. GLUCOSAMINE [Concomitant]

REACTIONS (12)
  - DISSEMINATED INTRAVASCULAR COAGULATION [None]
  - DRUG INTERACTION [None]
  - ELECTROCARDIOGRAM T WAVE INVERSION [None]
  - HAEMODIALYSIS [None]
  - HAEMOLYTIC URAEMIC SYNDROME [None]
  - HEPATITIS ACUTE [None]
  - HYPOTENSION [None]
  - NECK PAIN [None]
  - PARAESTHESIA [None]
  - RENAL FAILURE ACUTE [None]
  - RHABDOMYOLYSIS [None]
  - SEPSIS [None]
